FAERS Safety Report 19959141 (Version 2)
Quarter: 2021Q4

REPORT INFORMATION
  Report Type: Report from Study
  Country: NL (occurrence: NL)
  Receive Date: 20211015
  Receipt Date: 20211019
  Transmission Date: 20220303
  Serious: Yes (Death)
  Sender: FDA-Public Use
  Company Number: NL-VER-202100147

PATIENT
  Age: 80 Year
  Sex: Male

DRUGS (1)
  1. TRIPTORELIN PAMOATE [Suspect]
     Active Substance: TRIPTORELIN PAMOATE
     Indication: Prostate cancer
     Dosage: 22.5 MG SOLV 2ML (1ST) (22.5 MG,6 M)
     Route: 030
     Dates: start: 20180727

REACTIONS (1)
  - Terminal state [Fatal]
